FAERS Safety Report 6511184-3 (Version None)
Quarter: 2009Q4

REPORT INFORMATION
  Report Type: 
  Country: None (occurrence: None)
  Receive Date: 20091222
  Receipt Date: 20091216
  Transmission Date: 20100525
  Serious: Yes (Other)
  Sender: FDA-Public Use
  Company Number: US-SANOFI-AVENTIS-2009SA008677

PATIENT
  Age: 64 Year
  Sex: Female

DRUGS (8)
  1. PLAVIX [Suspect]
     Route: 048
     Dates: start: 20070101
  2. AMLODIPINE [Concomitant]
     Indication: BLOOD PRESSURE
  3. LISINOPRIL [Concomitant]
     Dosage: 10MG TABS: 2 TABS IN AM, 1 TAB IN PM
  4. VITAMIN D [Concomitant]
  5. FISH OIL [Concomitant]
  6. CALCIUM [Concomitant]
  7. CHONDROITIN SULFATE [Concomitant]
  8. ALL OTHER THERAPEUTIC PRODUCTS [Concomitant]

REACTIONS (5)
  - DYSPEPSIA [None]
  - INHIBITORY DRUG INTERACTION [None]
  - PAIN IN EXTREMITY [None]
  - PERIPHERAL ARTERIAL OCCLUSIVE DISEASE [None]
  - POLYMYALGIA RHEUMATICA [None]
